FAERS Safety Report 5847732-6 (Version None)
Quarter: 2008Q3

REPORT INFORMATION
  Report Type: 
  Country: None (occurrence: None)
  Receive Date: 20080814
  Receipt Date: 20080731
  Transmission Date: 20090109
  Serious: Yes (Other)
  Sender: FDA-Public Use
  Company Number: 031636

PATIENT
  Sex: Male

DRUGS (4)
  1. LEFLUNOMIDE(LEFLUNOMIDE) TABLET, UNK [Suspect]
     Indication: ANKYLOSING SPONDYLITIS
  2. LEFLUNOMIDE(LEFLUNOMIDE) TABLET, UNK [Suspect]
     Indication: CROHN'S DISEASE
  3. HUMIRA [Suspect]
     Indication: ANKYLOSING SPONDYLITIS
  4. HUMIRA [Suspect]
     Indication: CROHN'S DISEASE

REACTIONS (3)
  - DERMATITIS PSORIASIFORM [None]
  - REITER'S SYNDROME [None]
  - URETHRITIS UREAPLASMAL [None]
